FAERS Safety Report 4355694-6 (Version None)
Quarter: 2004Q2

REPORT INFORMATION
  Report Type: 
  Country: None (occurrence: None)
  Receive Date: 20040505
  Receipt Date: 20040426
  Transmission Date: 20050107
  Serious: Yes (Hospitalization)
  Sender: FDA-Public Use
  Company Number: 2004-03-1585

PATIENT
  Age: 46 Year
  Sex: Female
  Weight: 45.3597 kg

DRUGS (6)
  1. INTRON A [Suspect]
     Indication: THROMBOCYTHAEMIA
     Dosage: 1.5-2.0MIU QD
     Dates: start: 20030822, end: 20040312
  2. VITAMIN A [Concomitant]
  3. VITAMIN B COMPLEX CAP [Concomitant]
  4. VITAMIN C [Concomitant]
  5. VITAMIN E [Concomitant]
  6. MULTI MINERAL COMPLEX [Concomitant]

REACTIONS (11)
  - ABDOMINAL PAIN UPPER [None]
  - CHEST PAIN [None]
  - DIARRHOEA [None]
  - GASTROINTESTINAL DISORDER [None]
  - IRRITABLE BOWEL SYNDROME [None]
  - NAUSEA [None]
  - POSTNASAL DRIP [None]
  - PYREXIA [None]
  - SINUS CONGESTION [None]
  - VOMITING [None]
  - WHEEZING [None]
